FAERS Safety Report 19019962 (Version 1)
Quarter: 2021Q1

REPORT INFORMATION
  Report Type: Spontaneous
  Country: CN (occurrence: CN)
  Receive Date: 20210317
  Receipt Date: 20210317
  Transmission Date: 20210420
  Serious: Yes (Other)
  Sender: FDA-Public Use
  Company Number: CN-AXELLIA-003709

PATIENT
  Age: 28 Year
  Sex: Female

DRUGS (3)
  1. CILASTATIN/IMIPENEM [Concomitant]
     Active Substance: CILASTATIN SODIUM\IMIPENEM
     Indication: ACINETOBACTER TEST POSITIVE
     Dosage: 1G EVERY 8 HOURS
  2. FLUCONAZOLE. [Concomitant]
     Active Substance: FLUCONAZOLE
     Indication: ACINETOBACTER TEST POSITIVE
     Dosage: 0.4G EVERY 12 HOURS
  3. TIGECYCLINE. [Suspect]
     Active Substance: TIGECYCLINE
     Indication: ACINETOBACTER TEST POSITIVE
     Dosage: LOADING DOSE 100MG
     Route: 042

REACTIONS (1)
  - Leukocytosis [Recovered/Resolved]
